FAERS Safety Report 13549698 (Version 1)
Quarter: 2017Q2

REPORT INFORMATION
  Report Type: Spontaneous
  Country: US (occurrence: US)
  Receive Date: 20170516
  Receipt Date: 20170516
  Transmission Date: 20170830
  Serious: No
  Sender: FDA-Public Use
  Company Number: US-TEVA-718554USA

PATIENT
  Sex: Female

DRUGS (1)
  1. ACETAMINOPHEN W/OXYCODONE [Suspect]
     Active Substance: ACETAMINOPHEN\OXYCODONE HYDROCHLORIDE
     Indication: PAIN
     Dosage: 7.5-325 MG

REACTIONS (7)
  - Product substitution issue [Unknown]
  - Intentional product use issue [Unknown]
  - Pain [Unknown]
  - Drug ineffective [Unknown]
  - Anxiety [Unknown]
  - Pruritus [Unknown]
  - Muscle spasms [Unknown]
